FAERS Safety Report 6710721-3 (Version None)
Quarter: 2010Q2

REPORT INFORMATION
  Report Type: 
  Country: None (occurrence: None)
  Receive Date: 20100428
  Receipt Date: 20100428
  Transmission Date: 20101027
  Serious: Yes (Death)
  Sender: FDA-Public Use
  Company Number: None

PATIENT
  Age: 84 Year
  Sex: Female

DRUGS (4)
  1. UFH -UNFRACTIONATED HEPARIN [Suspect]
     Indication: ANTICOAGULANT THERAPY
     Dosage: 19500 IU IV
     Route: 042
     Dates: start: 20091220
  2. ASPEGIC 1000 [Concomitant]
  3. PLAVIX [Concomitant]
  4. CPRDARONE -AMIODARONE- [Concomitant]

REACTIONS (3)
  - BRADYCARDIA [None]
  - CARDIAC ARREST [None]
  - MYOCARDIAL INFARCTION [None]
